FAERS Safety Report 8714871 (Version 2)
Quarter: 2012Q4

REPORT INFORMATION
  Report Type: Report from Study
  Country: FR (occurrence: FR)
  Receive Date: 20120809
  Receipt Date: 20120918
  Transmission Date: 20130627
  Serious: Yes (Life-Threatening, Hospitalization, Other)
  Sender: FDA-Public Use
  Company Number: FR-ASTELLAS-2011EU005602

PATIENT
  Age: 54 Year
  Sex: Male
  Weight: 68 kg

DRUGS (16)
  1. TACROLIMUS [Suspect]
     Indication: RENAL AND LIVER TRANSPLANT
     Dosage: 1 mg, UID/QD
     Route: 065
     Dates: end: 20111109
  2. PROGRAF [Interacting]
     Indication: RENAL AND LIVER TRANSPLANT
     Dosage: 2 mg, Unknown/D
     Route: 065
     Dates: start: 20100610, end: 20110808
  3. PROGRAF [Interacting]
     Dosage: 2 mg, UID/QD
     Dates: start: 20110808
  4. CORTICOSTEROID NOS [Concomitant]
     Dosage: 10 mg, Unknown/D
     Route: 065
  5. STILNOX [Suspect]
     Indication: PAIN IN EXTREMITY
     Dosage: 10 mg, Unknown/D
     Route: 048
     Dates: start: 2009
  6. SKENAN [Suspect]
     Indication: PAIN IN EXTREMITY
     Dosage: 20 M, Unknown/D
     Route: 048
     Dates: start: 2009
  7. ACTISKENAN [Suspect]
     Indication: PAIN IN EXTREMITY
     Dosage: 60 mg, Unknown/D
     Route: 048
     Dates: start: 2009
  8. MOPRAL                             /00661201/ [Suspect]
     Indication: ABDOMINAL PAIN UPPER
     Dosage: 20 mg, Unknown/D
     Route: 048
     Dates: start: 2009
  9. DOMPERIDONE [Suspect]
     Indication: ABDOMINAL PAIN UPPER
     Dosage: 20 mg, Unknown/D
     Route: 048
     Dates: end: 20111109
  10. CORTANCYL [Concomitant]
     Indication: PROPHYLAXIS AGAINST TRANSPLANT REJECTION
     Dosage: 10 mg, Unknown/D
     Route: 048
     Dates: start: 1998
  11. LANTUS [Concomitant]
     Indication: DIABETES MELLITUS
     Dosage: 10 mg, Unknown/D
     Route: 058
  12. LYRICA [Concomitant]
     Indication: PAIN IN EXTREMITY
     Dosage: 100 mg, Unknown/D
     Route: 048
     Dates: start: 2009
  13. NEBIVOLOL [Concomitant]
     Indication: HYPERTENSION
     Dosage: 5 mg, Unknown/D
     Route: 048
     Dates: start: 2009
  14. ALLOPURINOL [Concomitant]
     Indication: GOUT
     Dosage: 100 mg, Unknown/D
     Route: 048
     Dates: start: 2009
  15. XATRAL [Concomitant]
     Indication: DYSURIA
     Dosage: UNK
     Route: 048
     Dates: start: 2009
  16. CO APROVEL [Concomitant]
     Indication: HYPERTENSION
     Dosage: UNK
     Route: 048
     Dates: start: 2009

REACTIONS (5)
  - Overdose [Recovered/Resolved]
  - Drug administration error [Recovered/Resolved]
  - Drug interaction [Not Recovered/Not Resolved]
  - Drug level changed [Not Recovered/Not Resolved]
  - Tremor [Not Recovered/Not Resolved]
